FAERS Safety Report 11074775 (Version 1)
Quarter: 2015Q2

REPORT INFORMATION
  Report Type: Spontaneous
  Country: IT (occurrence: IT)
  Receive Date: 20150429
  Receipt Date: 20150429
  Transmission Date: 20150821
  Serious: Yes (Other)
  Sender: FDA-Public Use
  Company Number: IT-ACTAVIS-2015-08568

PATIENT
  Age: 87 Year
  Sex: Female

DRUGS (3)
  1. PROMAZINE [Concomitant]
     Active Substance: PROMAZINE
     Indication: ABNORMAL BEHAVIOUR
     Dosage: 30 GTT DROP(S), UNKNOWN
     Route: 048
  2. QUETIAPINE [Suspect]
     Active Substance: QUETIAPINE
     Indication: ABNORMAL BEHAVIOUR
     Dosage: 75 MG, DAILY
     Route: 048
     Dates: start: 20130601
  3. MIRTAZAPINE. [Concomitant]
     Active Substance: MIRTAZAPINE
     Indication: DEPRESSIVE DELUSION
     Dosage: 15 MG, UNKNOWN
     Route: 048

REACTIONS (3)
  - Pyramidal tract syndrome [Recovered/Resolved with Sequelae]
  - Aphasia [Recovered/Resolved with Sequelae]
  - Dysphagia [Recovered/Resolved with Sequelae]

NARRATIVE: CASE EVENT DATE: 20150329
